FAERS Safety Report 8095784 (Version 3)
Quarter: 2013Q1

REPORT INFORMATION
  Report Type: Report from Study
  Country: BR (occurrence: BR)
  Receive Date: 20110818
  Receipt Date: 20130206
  Transmission Date: 20140127
  Serious: Yes (Hospitalization)
  Sender: FDA-Public Use
  Company Number: BR-SANOFI-AVENTIS-2011SA051151

PATIENT
  Age: 39 Year
  Sex: Female
  Weight: 90 kg

DRUGS (4)
  1. DOCETAXEL [Suspect]
     Indication: BREAST CANCER
     Route: 041
     Dates: start: 20110705, end: 20110726
  2. BLINDED THERAPY [Suspect]
     Indication: BREAST CANCER
     Route: 065
     Dates: start: 20110705, end: 20110726
  3. DEXAMETHASONE [Concomitant]
     Dates: start: 20110627
  4. TRAMAL [Concomitant]
     Dates: start: 20110627

REACTIONS (1)
  - Hydrocephalus [Recovering/Resolving]
